FAERS Safety Report 8905875 (Version 1)
Quarter: 2012Q4

REPORT INFORMATION
  Report Type: 
  Country: US (occurrence: US)
  Receive Date: 20121111
  Receipt Date: 20121111
  Transmission Date: 20130627
  Serious: Yes (Other)
  Sender: FDA-Public Use
  Company Number: PHEH2012US021930

PATIENT
  Sex: Male

DRUGS (1)
  1. SANDOSTATIN LAR [Suspect]
     Dates: start: 2010

REACTIONS (4)
  - Angiodysplasia [Unknown]
  - Arteriovenous malformation [Unknown]
  - Gastrointestinal haemorrhage [Not Recovered/Not Resolved]
  - Medical device complication [Unknown]
